FAERS Safety Report 6603655-6 (Version None)
Quarter: 2010Q1

REPORT INFORMATION
  Report Type: 
  Country: None (occurrence: None)
  Receive Date: 20100226
  Receipt Date: 20100217
  Transmission Date: 20100710
  Serious: Yes (Other)
  Sender: FDA-Public Use
  Company Number: US-JNJFOC-20100208647

PATIENT
  Sex: Female

DRUGS (11)
  1. DURAGESIC-100 [Suspect]
     Indication: PAIN
     Route: 062
  2. DURAGESIC-100 [Suspect]
     Route: 062
  3. PREMARIN [Concomitant]
     Indication: HOT FLUSH
     Route: 048
  4. ARAVA [Concomitant]
     Indication: RHEUMATOID ARTHRITIS
     Route: 048
  5. PREDNISONE TAB [Concomitant]
     Indication: RHEUMATOID ARTHRITIS
     Route: 048
  6. AMITRIPTYLINE HCL [Concomitant]
     Indication: ANXIETY
     Route: 048
  7. AMITRIPTYLINE HCL [Concomitant]
     Indication: SLEEP DISORDER
     Route: 048
  8. PROVENTIL [Concomitant]
     Indication: ASTHMA
     Route: 055
  9. PROVENTIL [Concomitant]
     Indication: EMPHYSEMA
     Route: 055
  10. ALBUTEROL [Concomitant]
     Indication: ASTHMA
     Route: 055
  11. ALBUTEROL [Concomitant]
     Indication: EMPHYSEMA
     Route: 055

REACTIONS (7)
  - HYPERTENSION [None]
  - INADEQUATE ANALGESIA [None]
  - INAPPROPRIATE SCHEDULE OF DRUG ADMINISTRATION [None]
  - INFECTION [None]
  - PARASITE URINE TEST POSITIVE [None]
  - SEPSIS [None]
  - WHITE BLOOD CELL COUNT INCREASED [None]
